FAERS Safety Report 12238557 (Version 1)
Quarter: 2016Q2

REPORT INFORMATION
  Report Type: Spontaneous
  Country: US (occurrence: US)
  Receive Date: 20160405
  Receipt Date: 20160405
  Transmission Date: 20160815
  Serious: No
  Sender: FDA-Public Use
  Company Number: US-PFIZER INC-2016175175

PATIENT
  Age: 64 Year
  Sex: Male

DRUGS (1)
  1. XALKORI [Suspect]
     Active Substance: CRIZOTINIB
     Dosage: 250 MG, UNK

REACTIONS (5)
  - Diarrhoea [Unknown]
  - Visual impairment [Unknown]
  - Bradycardia [Unknown]
  - Foreign body [Unknown]
  - Throat irritation [Unknown]

NARRATIVE: CASE EVENT DATE: 20160322
